FAERS Safety Report 5123079-0 (Version None)
Quarter: 2006Q4

REPORT INFORMATION
  Report Type: 
  Country: None (occurrence: None)
  Receive Date: 20061005
  Receipt Date: 20060926
  Transmission Date: 20070319
  Serious: Yes (Other)
  Sender: FDA-Public Use
  Company Number: 2006115604

PATIENT
  Age: 15 Year
  Sex: Male
  Weight: 49.8957 kg

DRUGS (1)
  1. LISTERINE (MENTHOL, METHYL SALICYLATE, EUCALYPTOL, THYMOL) [Suspect]
     Indication: POISONING
     Dosage: THE WHOLE BOTTLE AT LEAST 3
     Dates: start: 20060601, end: 20060923

REACTIONS (3)
  - ALCOHOL POISONING [None]
  - INCORRECT ROUTE OF DRUG ADMINISTRATION [None]
  - INTENTIONAL DRUG MISUSE [None]
